FAERS Safety Report 7150495-8 (Version None)
Quarter: 2010Q4

REPORT INFORMATION
  Report Type: 
  Country: None (occurrence: None)
  Receive Date: 20101124
  Receipt Date: 20101111
  Transmission Date: 20110411
  Serious: Yes (Death, Hospitalization)
  Sender: FDA-Public Use
  Company Number: UTC-002091

PATIENT
  Age: 66 Year
  Sex: Male

DRUGS (1)
  1. REMODULIN [Suspect]
     Dosage: 118.08 UG/KG (0.082 UG/KG,1 IN 1 MIN),SUBCUTANEOUS
     Route: 058
     Dates: start: 20100409

REACTIONS (1)
  - DEATH [None]
